FAERS Safety Report 14638189 (Version 2)
Quarter: 2018Q3

REPORT INFORMATION
  Report Type: Spontaneous
  Country: US (occurrence: US)
  Receive Date: 20180314
  Receipt Date: 20180724
  Transmission Date: 20181010
  Serious: Yes (Hospitalization, Other)
  Sender: FDA-Public Use
  Company Number: US-MALLINCKRODT-T201800848

PATIENT
  Age: 65 Year
  Sex: Female
  Weight: 75 kg

DRUGS (10)
  1. H.P. ACTHAR [Suspect]
     Active Substance: CORTICOTROPIN
     Dosage: 80 U,  ONCE EVERY 2 WEEKS
     Route: 058
  2. METOPROLOL. [Concomitant]
     Active Substance: METOPROLOL
     Indication: HEART RATE IRREGULAR
     Dosage: 150 MG EVERY DAY
     Route: 065
  3. H.P. ACTHAR [Suspect]
     Active Substance: CORTICOTROPIN
     Indication: SARCOIDOSIS
     Dosage: 1 ML, TWICE WEEKLY FOR 12 WEEKS
     Route: 058
     Dates: start: 20180223, end: 20180223
  4. LOSARTAN. [Concomitant]
     Active Substance: LOSARTAN
     Indication: BLOOD PRESSURE INCREASED
     Dosage: 50 MG TWICE A DAY
     Route: 065
  5. PEPCID [Concomitant]
     Active Substance: FAMOTIDINE
     Indication: PRODUCT USED FOR UNKNOWN INDICATION
     Dosage: TWICE A DAY
     Route: 065
  6. H.P. ACTHAR [Suspect]
     Active Substance: CORTICOTROPIN
     Indication: RENAL FAILURE
     Dosage: 80 U,  TWICE A WEEK
     Route: 058
     Dates: start: 201803
  7. XANAX [Concomitant]
     Active Substance: ALPRAZOLAM
     Indication: INSOMNIA
     Dosage: 0.5 MG, EVERYDAY AT NIGHT
     Route: 065
  8. PREVACID [Concomitant]
     Active Substance: LANSOPRAZOLE
     Indication: GASTROOESOPHAGEAL REFLUX DISEASE
     Dosage: 30 MG, ONCE A DAY
     Route: 065
  9. METOPROLOL. [Concomitant]
     Active Substance: METOPROLOL
     Dosage: 50 MG, TWICE A DAY
     Route: 065
  10. SODIUM BICARBONATE. [Concomitant]
     Active Substance: SODIUM BICARBONATE
     Indication: PH BODY FLUID
     Dosage: 60 MG, 6 TABLETS IN A DAY
     Route: 065

REACTIONS (3)
  - Blood pressure increased [Unknown]
  - Visual impairment [Unknown]
  - Migraine [Unknown]

NARRATIVE: CASE EVENT DATE: 20180225
